FAERS Safety Report 18618271 (Version 2)
Quarter: 2020Q4

REPORT INFORMATION
  Report Type: Spontaneous
  Country: US (occurrence: US)
  Receive Date: 20201215
  Receipt Date: 20201215
  Transmission Date: 20210114
  Serious: No
  Sender: FDA-Public Use
  Company Number: US-ASTRAZENECA-2020SF65996

PATIENT
  Age: 25377 Day
  Sex: Female
  Weight: 78 kg

DRUGS (6)
  1. BYDUREON BCISE [Suspect]
     Active Substance: EXENATIDE
     Indication: TYPE 2 DIABETES MELLITUS
     Route: 058
     Dates: start: 20201203
  2. OMEPRAZOLE. [Suspect]
     Active Substance: OMEPRAZOLE
     Route: 065
  3. MELOXICAM. [Concomitant]
     Active Substance: MELOXICAM
     Dosage: 15.0MG UNKNOWN
  4. SIMVISTATIN [Concomitant]
     Active Substance: SIMVASTATIN
  5. RAMIPRIL. [Concomitant]
     Active Substance: RAMIPRIL
  6. TRULICITY [Concomitant]
     Active Substance: DULAGLUTIDE

REACTIONS (5)
  - Device leakage [Unknown]
  - Drug dose omission by device [Unknown]
  - Wrong technique in device usage process [Unknown]
  - Injection site mass [Unknown]
  - Device use issue [Unknown]

NARRATIVE: CASE EVENT DATE: 20201203
